FAERS Safety Report 7981569-7 (Version None)
Quarter: 2011Q4

REPORT INFORMATION
  Report Type: 
  Country: None (occurrence: None)
  Receive Date: 20111215
  Receipt Date: 20111208
  Transmission Date: 20120403
  Serious: Yes (Disabling, Other)
  Sender: FDA-Public Use
  Company Number: DE-UCBSA-046820

PATIENT
  Age: 68 Year
  Sex: Male

DRUGS (5)
  1. METHOTREXATE [Concomitant]
     Dosage: FOR } 6 YEARS
     Route: 048
  2. OMEPRAZOLE [Concomitant]
     Indication: GASTRITIS
     Route: 048
  3. RAMIPRIL [Concomitant]
     Indication: HYPERTENSION
     Route: 048
  4. CIMZIA [Suspect]
     Indication: RHEUMATOID ARTHRITIS
     Route: 058
     Dates: start: 20110601
  5. PREDNISOLONE [Concomitant]
     Route: 048

REACTIONS (5)
  - PARALYSIS [None]
  - DRUG INEFFECTIVE [None]
  - NEURITIS [None]
  - RHEUMATOID ARTHRITIS [None]
  - RADIAL NERVE PALSY [None]
